FAERS Safety Report 21817006 (Version 1)
Quarter: 2023Q1

REPORT INFORMATION
  Report Type: Other
  Country: US (occurrence: None)
  Receive Date: 20230104
  Receipt Date: 20230104
  Transmission Date: 20230417
  Serious: Yes (Other)
  Sender: FDA-Public Use
  Company Number: US-Merck Healthcare KGaA-9375768

PATIENT
  Age: 67 Year
  Sex: Female

DRUGS (2)
  1. AVELUMAB [Suspect]
     Active Substance: AVELUMAB
     Indication: Squamous cell carcinoma of lung
  2. UTOMILUMAB [Suspect]
     Active Substance: UTOMILUMAB
     Indication: Squamous cell carcinoma of lung

REACTIONS (2)
  - Scleroderma [Unknown]
  - Off label use [Unknown]
